FAERS Safety Report 15904359 (Version 1)
Quarter: 2019Q1

REPORT INFORMATION
  Report Type: Spontaneous
  Country: FR (occurrence: FR)
  Receive Date: 20190204
  Receipt Date: 20190204
  Transmission Date: 20190417
  Serious: Yes (Hospitalization)
  Sender: FDA-Public Use
  Company Number: FR-BIOGEN-2012BI012502

PATIENT
  Age: 45 Year
  Sex: Male
  Weight: 70 kg

DRUGS (6)
  1. AVONEX [Suspect]
     Active Substance: INTERFERON BETA-1A
     Indication: MULTIPLE SCLEROSIS
     Route: 030
     Dates: start: 20021015, end: 200310
  2. VENLAFAXINE [Concomitant]
     Active Substance: VENLAFAXINE HYDROCHLORIDE
     Indication: DEPRESSION
     Route: 065
     Dates: start: 2011
  3. AVONEX [Suspect]
     Active Substance: INTERFERON BETA-1A
     Route: 065
     Dates: start: 200310, end: 20071215
  4. ATARAX [Concomitant]
     Active Substance: HYDROXYZINE HYDROCHLORIDE
     Indication: DEPRESSION
     Route: 065
     Dates: start: 2011, end: 20120115
  5. SEROPRAM [Concomitant]
     Indication: DEPRESSION
     Route: 065
  6. AVONEX [Suspect]
     Active Substance: INTERFERON BETA-1A
     Route: 065
     Dates: start: 20110622, end: 20120103

REACTIONS (2)
  - Hallucination, auditory [Recovered/Resolved with Sequelae]
  - Hallucination, visual [Recovered/Resolved with Sequelae]

NARRATIVE: CASE EVENT DATE: 20120104
